FAERS Safety Report 4699009-2 (Version None)
Quarter: 2005Q2

REPORT INFORMATION
  Report Type: 
  Country: None (occurrence: None)
  Receive Date: 20050624
  Receipt Date: 20050616
  Transmission Date: 20051028
  Serious: Yes (Disabling)
  Sender: FDA-Public Use
  Company Number: US-KINGPHARMUSA00001-K200500822

PATIENT
  Age: 52 Year
  Sex: Male
  Weight: 63 kg

DRUGS (2)
  1. ALTACE [Suspect]
     Dosage: 2.5 MG, QD
     Route: 048
     Dates: start: 20050512, end: 20050609
  2. ASPIRIN [Concomitant]
     Dosage: 81 MG, QD
     Route: 048
     Dates: start: 20040101

REACTIONS (2)
  - RETINAL VEIN OCCLUSION [None]
  - SCOTOMA [None]
